FAERS Safety Report 25672945 (Version 1)
Quarter: 2025Q3

REPORT INFORMATION
  Report Type: Spontaneous
  Country: IN (occurrence: IN)
  Receive Date: 20250812
  Receipt Date: 20250812
  Transmission Date: 20251020
  Serious: Yes (Other)
  Sender: ABBVIE
  Company Number: IN-JNJFOC-20250807794

PATIENT

DRUGS (1)
  1. IMBRUVICA [Suspect]
     Active Substance: IBRUTINIB
     Indication: Product used for unknown indication
     Route: 048

REACTIONS (1)
  - Treatment failure [Unknown]
